FAERS Safety Report 9895736 (Version 1)
Quarter: 2014Q1

REPORT INFORMATION
  Report Type: Spontaneous
  Country: US (occurrence: US)
  Receive Date: 20140213
  Receipt Date: 20140213
  Transmission Date: 20141002
  Serious: No
  Sender: FDA-Public Use
  Company Number: US-BRISTOL-MYERS SQUIBB COMPANY-18983643

PATIENT
  Age: 55 Year
  Sex: Female
  Weight: 99.77 kg

DRUGS (9)
  1. ABATACEPT SUBQ INJECTION 125MG/ML [Suspect]
     Route: 058
  2. LOPRESSOR [Concomitant]
     Dosage: TAB
  3. ARAVA [Concomitant]
     Dosage: TAB
  4. SYNTHROID [Concomitant]
     Dosage: TAB
  5. LISINOPRIL [Concomitant]
     Dosage: TAB
  6. PRILOSEC [Concomitant]
  7. HUMIRA [Concomitant]
     Dosage: HUMIRA KIT 40MG/0.8
  8. MAGNESIUM SALICYLATE [Concomitant]
  9. PHENYLTOLOXAMINE [Concomitant]

REACTIONS (1)
  - Drug ineffective [Unknown]
